FAERS Safety Report 12827804 (Version 1)
Quarter: 2016Q4

REPORT INFORMATION
  Report Type: Spontaneous
  Country: JP (occurrence: JP)
  Receive Date: 20161006
  Receipt Date: 20161006
  Transmission Date: 20170207
  Serious: Yes (Hospitalization, Other)
  Sender: FDA-Public Use
  Company Number: JP-BAYER-2014-112528

PATIENT
  Age: 78 Year
  Sex: Male

DRUGS (1)
  1. STIVARGA [Suspect]
     Active Substance: REGORAFENIB
     Indication: RECTAL CANCER
     Dosage: UNK
     Route: 048
     Dates: start: 201401, end: 201401

REACTIONS (8)
  - Proteinuria [None]
  - Oedema peripheral [None]
  - Palmar-plantar erythrodysaesthesia syndrome [None]
  - Blister [None]
  - Hypoalbuminaemia [None]
  - Nephrotic syndrome [None]
  - Abdominal distension [None]
  - Face oedema [None]

NARRATIVE: CASE EVENT DATE: 201401
